FAERS Safety Report 5163224-4 (Version None)
Quarter: 2006Q4

REPORT INFORMATION
  Report Type: 
  Country: None (occurrence: None)
  Receive Date: 20061204
  Receipt Date: 20060927
  Transmission Date: 20070319
  Serious: Yes (Death, Hospitalization)
  Sender: FDA-Public Use
  Company Number: 2006SE05174

PATIENT
  Age: 925 Month
  Sex: Female
  Weight: 53 kg

DRUGS (13)
  1. BLOPRESS [Suspect]
     Indication: HYPERTENSION
     Route: 048
     Dates: start: 20030325, end: 20031113
  2. BLOPRESS [Suspect]
     Route: 048
     Dates: start: 20031114, end: 20040115
  3. BLOPRESS [Suspect]
     Route: 048
     Dates: start: 20040116
  4. BASEN [Concomitant]
     Indication: DIABETES MELLITUS NON-INSULIN-DEPENDENT
     Route: 048
     Dates: start: 20001101
  5. BASEN [Concomitant]
     Route: 048
     Dates: start: 20011019
  6. ACTOS [Concomitant]
     Indication: DIABETES MELLITUS NON-INSULIN-DEPENDENT
     Route: 048
     Dates: start: 20011201
  7. ACTOS [Concomitant]
     Route: 048
     Dates: start: 20030617, end: 20030901
  8. ACTOS [Concomitant]
     Route: 048
     Dates: start: 20030902
  9. LIPOVAS [Concomitant]
     Indication: HYPERLIPIDAEMIA
     Route: 048
     Dates: start: 19980807
  10. DIURETICS [Concomitant]
     Indication: HYPERTENSION
     Route: 065
  11. AMLODIPINE BESYLATE [Concomitant]
     Indication: HYPERTENSION
     Route: 048
     Dates: start: 19970512, end: 20030309
  12. ATELEC [Concomitant]
     Indication: HYPERTENSION
     Route: 048
     Dates: start: 20040309
  13. ANTIHYPERTENSIVES [Concomitant]
     Indication: HYPERTENSION
     Route: 065

REACTIONS (1)
  - INTERSTITIAL LUNG DISEASE [None]
